FAERS Safety Report 12621395 (Version 2)
Quarter: 2016Q3

REPORT INFORMATION
  Report Type: Spontaneous
  Country: US (occurrence: US)
  Receive Date: 20160804
  Receipt Date: 20160822
  Transmission Date: 20161109
  Serious: No
  Sender: FDA-Public Use
  Company Number: US-PFIZER INC-2016371791

PATIENT
  Age: 49 Year
  Sex: Female
  Weight: 53 kg

DRUGS (6)
  1. CYTOMEL [Suspect]
     Active Substance: LIOTHYRONINE SODIUM
     Dosage: 37.5 UG, 1X/DAY, (1/2 TABLET IN THE MORNING, 1/2 TABLET IN THE AFTERNOON,1/2 TABLET AT NIGHT)
  2. CYTOMEL [Suspect]
     Active Substance: LIOTHYRONINE SODIUM
     Dosage: 35 UG, DAILY, (5 MCG TABLETS, 2 IN THE MORNING, 3 IN THE AFTERNOON, AND 2 IN THE EVENING)
     Dates: start: 2013
  3. LIOTHYRONINE SODIUM. [Suspect]
     Active Substance: LIOTHYRONINE SODIUM
     Dosage: UNK
  4. CENTRUM [Concomitant]
     Active Substance: VITAMINS
     Dosage: 1 DF, 1X/DAY
     Route: 048
  5. CALCIUM + VITAMIN D3 [Concomitant]
     Active Substance: CALCIUM CARBONATE\CHOLECALCIFEROL
     Indication: BONE DISORDER
     Dosage: 1 DF, 1X/DAY
     Route: 048
  6. CYTOMEL [Suspect]
     Active Substance: LIOTHYRONINE SODIUM
     Indication: HYPOTHYROIDISM
     Dosage: 25 UG, UNK (12.5 MCG THREE TIMES A DAY)
     Route: 048
     Dates: start: 201311

REACTIONS (3)
  - Intentional product misuse [Not Recovered/Not Resolved]
  - Drug ineffective [Unknown]
  - Weight increased [Unknown]
